FAERS Safety Report 13176961 (Version 1)
Quarter: 2017Q1

REPORT INFORMATION
  Report Type: Report from Study
  Country: US (occurrence: US)
  Receive Date: 20170201
  Receipt Date: 20170201
  Transmission Date: 20170428
  Serious: No
  Sender: FDA-Public Use
  Company Number: US-EXELIXIS-CABO-16006744

PATIENT
  Sex: Female
  Weight: 80.28 kg

DRUGS (15)
  1. LEVOTHYROXINE. [Concomitant]
     Active Substance: LEVOTHYROXINE
  2. SERTRALINE [Concomitant]
     Active Substance: SERTRALINE HYDROCHLORIDE
  3. CALCIUM D [Concomitant]
     Active Substance: CALCIUM\VITAMIN D
  4. COMETRIQ [Suspect]
     Active Substance: CABOZANTINIB S-MALATE
     Indication: THYROID CANCER
     Dosage: 60 MG, QD
     Route: 048
     Dates: start: 20160713, end: 201609
  5. COMETRIQ [Suspect]
     Active Substance: CABOZANTINIB S-MALATE
     Dosage: 40 MG, QD
     Route: 048
     Dates: start: 20160922
  6. POTASSIUM [Concomitant]
     Active Substance: POTASSIUM
  7. XGEVA [Concomitant]
     Active Substance: DENOSUMAB
  8. BETA GLUCAN [Concomitant]
     Active Substance: BETA GLUCAN
  9. CLARITIN [Concomitant]
     Active Substance: LORATADINE
  10. ALPRAZOLAM. [Concomitant]
     Active Substance: ALPRAZOLAM
  11. MELATONIN [Concomitant]
     Active Substance: MELATONIN
  12. STOOL SOFTENER (DOCUSATE CALCIUM) [Concomitant]
     Active Substance: DOCUSATE CALCIUM
  13. TRIAMTERENE. [Concomitant]
     Active Substance: TRIAMTERENE
  14. BIOTIN [Concomitant]
     Active Substance: BIOTIN
  15. VITAMIN D3 [Concomitant]
     Active Substance: CHOLECALCIFEROL

REACTIONS (14)
  - Oral pain [Not Recovered/Not Resolved]
  - Skin exfoliation [Recovering/Resolving]
  - Dysphonia [Not Recovered/Not Resolved]
  - Nausea [Recovering/Resolving]
  - Diarrhoea [Recovering/Resolving]
  - Dysgeusia [Recovering/Resolving]
  - Pain in extremity [Recovering/Resolving]
  - Blister [Recovering/Resolving]
  - Vomiting [Not Recovered/Not Resolved]
  - Dehydration [Unknown]
  - Decreased appetite [Recovering/Resolving]
  - Dry mouth [Unknown]
  - Stomatitis [Recovering/Resolving]
  - Malaise [Unknown]
